FAERS Safety Report 4559717-0 (Version None)
Quarter: 2005Q1

REPORT INFORMATION
  Report Type: 
  Country: None (occurrence: None)
  Receive Date: 20050113
  Receipt Date: 20040713
  Transmission Date: 20050727
  Serious: Yes (Hospitalization)
  Sender: FDA-Public Use
  Company Number: 2004015840

PATIENT
  Age: 77 Year
  Sex: Female

DRUGS (6)
  1. DIFLUCAN [Suspect]
     Indication: ILL-DEFINED DISORDER
     Dosage: ORAL
     Route: 048
     Dates: start: 20040102, end: 20040105
  2. CARVEDILOL [Suspect]
     Indication: ILL-DEFINED DISORDER
     Dosage: 6.25 MG (3.125 MG, 2 IN 1 WK), ORAL
     Route: 048
     Dates: start: 20040105
  3. VANCOMYCIN [Concomitant]
  4. GATIFLOXACIN [Concomitant]
  5. LANSOPRAZOLE [Concomitant]
  6. METRONIDAZOLE [Concomitant]

REACTIONS (1)
  - THROMBOCYTOPENIA [None]
